FAERS Safety Report 7937418-6 (Version None)
Quarter: 2011Q4

REPORT INFORMATION
  Report Type: 
  Country: None (occurrence: None)
  Receive Date: 20111123
  Receipt Date: 20111117
  Transmission Date: 20120403
  Serious: Yes (Hospitalization)
  Sender: FDA-Public Use
  Company Number: NL-MEDIMMUNE-MEDI-0013924

PATIENT
  Sex: Male
  Weight: 6.8 kg

DRUGS (6)
  1. FERROUS GLUCONATE [Concomitant]
     Dates: start: 20110101
  2. LEVETIRACETAM [Concomitant]
     Indication: EPILEPSY
  3. FOLIC ACID [Concomitant]
     Dates: start: 20110101
  4. SYNAGIS [Suspect]
     Indication: PREMATURE BABY
     Route: 030
     Dates: start: 20110914, end: 20111010
  5. SYNAGIS [Suspect]
     Route: 030
     Dates: start: 20111109, end: 20111109
  6. ESOMEPRAZOLE SODIUM [Concomitant]
     Dates: start: 20110101

REACTIONS (2)
  - HYPOPHAGIA [None]
  - NASOPHARYNGITIS [None]
